FAERS Safety Report 11182737 (Version 1)
Quarter: 2015Q2

REPORT INFORMATION
  Report Type: Spontaneous
  Country: CA (occurrence: CA)
  Receive Date: 20150611
  Receipt Date: 20150611
  Transmission Date: 20150821
  Serious: Yes (Hospitalization, Disabling)
  Sender: FDA-Public Use
  Company Number: CA-CELGENE-CAN-2015060495

PATIENT
  Sex: Female

DRUGS (1)
  1. REVLIMID [Suspect]
     Active Substance: LENALIDOMIDE
     Indication: PLASMA CELL MYELOMA
     Dosage: 10 MILLIGRAM
     Route: 048
     Dates: start: 20110219, end: 2015

REACTIONS (4)
  - Pulmonary thrombosis [Recovered/Resolved with Sequelae]
  - Haematoma [Recovered/Resolved with Sequelae]
  - Pneumonia [Recovered/Resolved with Sequelae]
  - Cystitis [Recovered/Resolved with Sequelae]
